FAERS Safety Report 6093467-7 (Version None)
Quarter: 2009Q1

REPORT INFORMATION
  Report Type: 
  Country: None (occurrence: None)
  Receive Date: 20090223
  Receipt Date: 20090223
  Transmission Date: 20090719
  Serious: No
  Sender: FDA-Public Use
  Company Number: None

PATIENT
  Sex: Female

DRUGS (1)
  1. FERRLECIT [Suspect]
     Dosage: 125 MG OVER 1 HOUR IV DRIP
     Route: 041
     Dates: start: 20090216, end: 20090219

REACTIONS (4)
  - BLOOD PRESSURE SYSTOLIC DECREASED [None]
  - DIARRHOEA [None]
  - HYPOTENSION [None]
  - NAUSEA [None]
